FAERS Safety Report 9603505 (Version 1)
Quarter: 2013Q4

REPORT INFORMATION
  Report Type: Spontaneous
  Country: ES (occurrence: ES)
  Receive Date: 20131007
  Receipt Date: 20131007
  Transmission Date: 20140711
  Serious: Yes (Hospitalization, Other)
  Sender: FDA-Public Use
  Company Number: PHHY2013ES108184

PATIENT
  Age: 63 Year
  Sex: Male

DRUGS (6)
  1. SANDOSTATIN LAR [Suspect]
     Indication: INSULINOMA
     Dosage: 20 MG EVERY 28 DAYS
  2. DEXAMETHASONE [Suspect]
     Dosage: 2 MG, BID
  3. DEXAMETHASONE [Suspect]
     Dosage: 1 MG, DAILY
  4. DIAZOXIDE [Suspect]
     Dosage: 200 MG, DAILY
  5. DIAZOXIDE [Suspect]
     Dosage: 500 MG, THREE TIMES DAILY
  6. DIAZOXIDE [Suspect]
     Dosage: 100 MG, BID

REACTIONS (5)
  - Hypoglycaemia [Recovered/Resolved]
  - Cushing^s syndrome [Unknown]
  - Respiratory failure [Unknown]
  - Oedema peripheral [Unknown]
  - Pleural effusion [Unknown]
